FAERS Safety Report 14185437 (Version 1)
Quarter: 2017Q4

REPORT INFORMATION
  Report Type: Spontaneous
  Country: FR (occurrence: FR)
  Receive Date: 20171113
  Receipt Date: 20171113
  Transmission Date: 20180321
  Serious: Yes (Other)
  Sender: FDA-Public Use
  Company Number: FR-MERCK KGAA-2033940

PATIENT
  Age: 79 Year
  Sex: Female

DRUGS (1)
  1. NOVOTHYROX [Suspect]
     Active Substance: LEVOTHYROXINE SODIUM
     Indication: THYROID DISORDER
     Route: 048

REACTIONS (6)
  - Fatigue [Recovered/Resolved]
  - Diffuse alopecia [Not Recovered/Not Resolved]
  - Incoherent [Not Recovered/Not Resolved]
  - Fall [Not Recovered/Not Resolved]
  - Middle insomnia [Not Recovered/Not Resolved]
  - Hypersomnia [Not Recovered/Not Resolved]

NARRATIVE: CASE EVENT DATE: 201705
